FAERS Safety Report 13818299 (Version 1)
Quarter: 2017Q3

REPORT INFORMATION
  Report Type: Spontaneous
  Country: US (occurrence: US)
  Receive Date: 20170731
  Receipt Date: 20170731
  Transmission Date: 20171127
  Serious: Yes (Other)
  Sender: FDA-Public Use
  Company Number: US-ROCHE-615812

PATIENT
  Age: 50 Year
  Sex: Female
  Weight: 98.9 kg

DRUGS (16)
  1. CELEBREX [Concomitant]
     Active Substance: CELECOXIB
     Route: 048
  2. LASIX [Concomitant]
     Active Substance: FUROSEMIDE
     Dosage: TAKEN IN MORNING
     Route: 048
  3. ZOLOFT [Concomitant]
     Active Substance: SERTRALINE HYDROCHLORIDE
     Route: 048
  4. UNIVASC [Concomitant]
     Active Substance: MOEXIPRIL HYDROCHLORIDE
     Dosage: TAKEN IN MORNING
     Route: 048
  5. VITAMIN B12 [Concomitant]
     Active Substance: CYANOCOBALAMIN
     Route: 058
  6. ACCOLATE [Concomitant]
     Active Substance: ZAFIRLUKAST
     Route: 048
  7. NASONEX [Concomitant]
     Active Substance: MOMETASONE FUROATE
     Dosage: FORM: SPRAY, TWO SPRAY EACH NOSTRIL DAILY
     Route: 045
  8. BONIVA [Suspect]
     Active Substance: IBANDRONATE SODIUM
     Indication: BONE LOSS
     Route: 042
  9. NOVOLOG [Concomitant]
     Active Substance: INSULIN ASPART
     Dosage: 11 UNIT WITH BREAKFAST, 34 UNIT WITH , 37 UNIT WITH SUPPER
     Route: 058
  10. TIZANIDINE. [Concomitant]
     Active Substance: TIZANIDINE
     Dosage: TAKEN AS NIGHT
     Route: 048
  11. TRICOR [Concomitant]
     Active Substance: FENOFIBRATE
     Route: 048
  12. PREDNISONE. [Concomitant]
     Active Substance: PREDNISONE
     Route: 048
  13. LEVEMIR [Concomitant]
     Active Substance: INSULIN DETEMIR
     Dosage: 50 UNIT AM AND 20 UNIT PM
     Route: 058
  14. ADVICOR [Concomitant]
     Active Substance: LOVASTATIN\NIACIN
     Dosage: DOSE: 500/20
     Route: 048
  15. GABAPENTIN. [Concomitant]
     Active Substance: GABAPENTIN
     Route: 048
  16. COMBIVENT [Concomitant]
     Active Substance: ALBUTEROL SULFATE\IPRATROPIUM BROMIDE
     Dosage: FORM: PUFF
     Route: 055

REACTIONS (2)
  - Cellulitis [Unknown]
  - Injection site pain [Unknown]

NARRATIVE: CASE EVENT DATE: 20090122
